FAERS Safety Report 15729845 (Version 1)
Quarter: 2018Q4

REPORT INFORMATION
  Report Type: Spontaneous
  Country: DE (occurrence: DE)
  Receive Date: 20181217
  Receipt Date: 20181217
  Transmission Date: 20190205
  Serious: Yes (Death, Hospitalization)
  Sender: FDA-Public Use
  Company Number: DE-PFIZER INC-HQWYE543314NOV05

PATIENT
  Age: 74 Year
  Sex: Female

DRUGS (1)
  1. METHOTREXATE SODIUM. [Suspect]
     Active Substance: METHOTREXATE SODIUM
     Indication: RHEUMATOID ARTHRITIS
     Dosage: 10 MG, 1X/DAY
     Route: 048
     Dates: end: 2000

REACTIONS (5)
  - Accidental overdose [Fatal]
  - Pancytopenia [Fatal]
  - Medication error [Fatal]
  - Rash [Unknown]
  - Pneumonia [Fatal]

NARRATIVE: CASE EVENT DATE: 2000
